FAERS Safety Report 9225113 (Version 3)
Quarter: 2013Q2

REPORT INFORMATION
  Report Type: Spontaneous
  Country: BR (occurrence: BR)
  Receive Date: 20130411
  Receipt Date: 20130508
  Transmission Date: 20140414
  Serious: Yes (Death)
  Sender: FDA-Public Use
  Company Number: BR-AMGEN-BRASP2013023772

PATIENT
  Age: 46 Year
  Sex: Female
  Weight: 66 kg

DRUGS (6)
  1. MIMPARA [Suspect]
     Indication: HYPERPARATHYROIDISM SECONDARY
     Dosage: 30 MG, QD
     Route: 048
     Dates: start: 201211, end: 201211
  2. SEVELAMER CARBONATE [Concomitant]
     Indication: HYPERPHOSPHATAEMIA
     Dosage: 800 MG, UNK
     Route: 048
     Dates: start: 200803
  3. MAREVAN [Concomitant]
     Indication: ANTIPHOSPHOLIPID SYNDROME
     Dosage: 5 MG, QD
     Route: 048
     Dates: start: 200803
  4. PREDNISONE [Concomitant]
     Indication: SYSTEMIC LUPUS ERYTHEMATOSUS
     Dosage: 5 MG, QD
     Route: 048
     Dates: start: 1988
  5. PLAQUINOL [Concomitant]
     Indication: SYSTEMIC LUPUS ERYTHEMATOSUS
     Dosage: 500 UNK, QD
     Route: 048
     Dates: start: 201110
  6. OMEPRAZOLE [Concomitant]
     Indication: GASTRITIS
     Dosage: 20 UNK, QD
     Route: 048
     Dates: start: 200808

REACTIONS (4)
  - Urinary tract infection [Fatal]
  - Malaise [Recovered/Resolved]
  - Anxiety disorder [Recovered/Resolved]
  - Abdominal pain [Recovered/Resolved]
